FAERS Safety Report 4824294-3 (Version None)
Quarter: 2005Q4

REPORT INFORMATION
  Report Type: 
  Country: None (occurrence: None)
  Receive Date: 20051109
  Receipt Date: 20050707
  Transmission Date: 20060501
  Serious: Yes (Hospitalization)
  Sender: FDA-Public Use
  Company Number: US-MERCK-0507USA01363

PATIENT
  Age: 62 Year
  Sex: Male
  Weight: 75 kg

DRUGS (8)
  1. AMBIEN [Concomitant]
     Route: 065
  2. ULTRAM [Concomitant]
     Route: 065
  3. ZOCOR [Concomitant]
     Route: 065
     Dates: start: 20000101
  4. CARDURA [Concomitant]
     Route: 065
     Dates: start: 19990101
  5. TYLENOL (CAPLET) [Concomitant]
     Route: 065
     Dates: start: 19890101
  6. VIOXX [Suspect]
     Indication: BONE PAIN
     Route: 048
     Dates: start: 19990101, end: 20040101
  7. VIOXX [Suspect]
     Indication: SHOULDER OPERATION
     Route: 048
     Dates: start: 19990101, end: 20040101
  8. NORVASC [Concomitant]
     Route: 065
     Dates: start: 20000101

REACTIONS (4)
  - ARTERIOSCLEROSIS [None]
  - ARTHROPATHY [None]
  - CARDIAC DISORDER [None]
  - MYOCARDIAL INFARCTION [None]
